FAERS Safety Report 8972243 (Version 2)
Quarter: 2013Q1

REPORT INFORMATION
  Report Type: Report from Study
  Country: DE (occurrence: DE)
  Receive Date: 20121218
  Receipt Date: 20130131
  Transmission Date: 20140127
  Serious: Yes (Hospitalization)
  Sender: FDA-Public Use
  Company Number: DE-ROCHE-1168103

PATIENT
  Age: 73 Year
  Sex: Female
  Weight: 82 kg

DRUGS (4)
  1. BEVACIZUMAB [Suspect]
     Indication: COLON CANCER
     Dosage: DATE OF LAST DOSE PRIOR TO SAE: 11/DEC/2012
     Route: 042
     Dates: start: 20120918
  2. OXALIPLATIN [Suspect]
     Indication: COLON CANCER
     Dosage: DATE OF LAST DOSE PRIOR TO SAE: 11/DEC/2012
     Route: 042
     Dates: start: 20120918
  3. FOLINIC ACID [Suspect]
     Indication: COLON CANCER
     Dosage: DATE OF LAST DOSE PRIOR TO SAE: 11/DEC/2012
     Route: 042
     Dates: start: 20120918
  4. 5-FLUOROURACIL [Suspect]
     Indication: COLON CANCER
     Dosage: DATE OF LAST DOSE PRIOR TO SAE: 11/DEC/2012
     Route: 042
     Dates: start: 20120918

REACTIONS (1)
  - Hyperglycaemia [Recovered/Resolved]
